FAERS Safety Report 9176021 (Version 2)
Quarter: 2013Q2

REPORT INFORMATION
  Report Type: Spontaneous
  Country: GB (occurrence: GB)
  Receive Date: 20130320
  Receipt Date: 20130402
  Transmission Date: 20140414
  Serious: Yes (Death, Congenital Anomaly)
  Sender: FDA-Public Use
  Company Number: GB-MYLANLABS-2013S1005499

PATIENT
  Sex: 0

DRUGS (2)
  1. RISPERIDONE [Suspect]
  2. XEPLION [Suspect]

REACTIONS (2)
  - Exposure during pregnancy [Unknown]
  - Foetal disorder [Fatal]
